FAERS Safety Report 4666428-X (Version None)
Quarter: 2005Q2

REPORT INFORMATION
  Report Type: 
  Country: None (occurrence: None)
  Receive Date: 20050518
  Receipt Date: 20050504
  Transmission Date: 20051028
  Serious: Yes (Hospitalization)
  Sender: FDA-Public Use
  Company Number: 2005BI009072

PATIENT
  Age: 26 Year
  Sex: Female

DRUGS (1)
  1. AVONEX [Suspect]
     Indication: MULTIPLE SCLEROSIS
     Dosage: 30 UG;QW; IM
     Route: 030
     Dates: start: 20050429, end: 20050429

REACTIONS (12)
  - ABASIA [None]
  - APHASIA [None]
  - COLD SWEAT [None]
  - DEHYDRATION [None]
  - DYSPNOEA [None]
  - DYSSTASIA [None]
  - EYELID FUNCTION DISORDER [None]
  - INFLUENZA LIKE ILLNESS [None]
  - MIGRAINE [None]
  - PYREXIA [None]
  - SENSORY LOSS [None]
  - TREMOR [None]
